FAERS Safety Report 8979428 (Version 4)
Quarter: 2013Q3

REPORT INFORMATION
  Report Type: Report from Study
  Country: GB (occurrence: GB)
  Receive Date: 20121221
  Receipt Date: 20130709
  Transmission Date: 20140515
  Serious: Yes (Other)
  Sender: FDA-Public Use
  Company Number: GB-ROCHE-1165723

PATIENT
  Sex: 0

DRUGS (2)
  1. BEVACIZUMAB [Suspect]
     Indication: NEOPLASM
     Route: 042
  2. OMBRABULIN [Suspect]
     Indication: NEOPLASM
     Route: 042

REACTIONS (2)
  - Ileal perforation [Unknown]
  - Metastases to peritoneum [Unknown]
